FAERS Safety Report 5695693-5 (Version None)
Quarter: 2008Q2

REPORT INFORMATION
  Report Type: 
  Country: None (occurrence: None)
  Receive Date: 20080407
  Receipt Date: 20080327
  Transmission Date: 20081010
  Serious: Yes (Other)
  Sender: FDA-Public Use
  Company Number: US-JNJFOC-20080306892

PATIENT
  Sex: Female
  Weight: 65.32 kg

DRUGS (11)
  1. REMICADE [Suspect]
     Indication: RHEUMATOID ARTHRITIS
     Dosage: 7 INFUSIONS TOTAL
     Route: 042
  2. METHOTREXATE [Concomitant]
     Indication: RHEUMATOID ARTHRITIS
     Dosage: 1/DAY FOR 25 YEARS
  3. ARIMIDEX [Concomitant]
     Indication: BREAST CANCER
     Dosage: 2YEARS
  4. FOLIC ACID [Concomitant]
     Indication: RHEUMATOID ARTHRITIS
     Dosage: 25 YEARS
  5. CITRACAL WITH VITAMIN D [Concomitant]
     Indication: BONE DISORDER
     Dosage: 1 YEAR
  6. NAPROXEN [Concomitant]
  7. MULTI-VITAMIN [Concomitant]
     Indication: VITAMIN SUPPLEMENTATION
     Dosage: 2 YEARS
  8. ASPIRIN [Concomitant]
     Indication: CARDIAC DISORDER
     Dosage: 1 YEAR
  9. HEMOCYTE PLUS [Concomitant]
     Dosage: 3YEARS
  10. VITAMIN D [Concomitant]
     Indication: RHEUMATOID ARTHRITIS
     Dosage: 50,000 UNITS FOR 6 MONTHS
  11. OMEPRAZOLE [Concomitant]
     Indication: GASTRIC DISORDER
     Dosage: 6 MONTHS

REACTIONS (6)
  - COUGH [None]
  - FEELING ABNORMAL [None]
  - INTRAOCULAR PRESSURE INCREASED [None]
  - PHARYNGOLARYNGEAL PAIN [None]
  - RASH [None]
  - RHINORRHOEA [None]
